FAERS Safety Report 23622713 (Version 1)
Quarter: 2024Q1

REPORT INFORMATION
  Report Type: Spontaneous
  Country: EG (occurrence: EG)
  Receive Date: 20240312
  Receipt Date: 20240312
  Transmission Date: 20240409
  Serious: Yes (Hospitalization, Other)
  Sender: FDA-Public Use
  Company Number: EG-SA-SAC20240311001246

PATIENT
  Age: 65 Year
  Sex: Female
  Weight: 87 kg

DRUGS (10)
  1. ENOXAPARIN SODIUM [Suspect]
     Active Substance: ENOXAPARIN SODIUM
     Indication: Myocardial ischaemia
     Dosage: 60 MG, BID
     Route: 058
     Dates: start: 20231204, end: 20231222
  2. PLAVIX [Suspect]
     Active Substance: CLOPIDOGREL BISULFATE
     Indication: Myocardial ischaemia
     Dosage: 1 DF, QD
     Route: 048
     Dates: start: 20231204, end: 20231222
  3. ASPIRIN [Suspect]
     Active Substance: ASPIRIN
     Indication: Myocardial ischaemia
     Dosage: 1 DF, QD
     Route: 048
     Dates: start: 20231204, end: 20231222
  4. NORVASC [Concomitant]
     Active Substance: AMLODIPINE BESYLATE
     Indication: Hypertension
     Dosage: 10MG, QD
     Route: 048
     Dates: start: 20231204, end: 20231226
  5. ATROVENT [Concomitant]
     Active Substance: IPRATROPIUM BROMIDE
     Indication: Pneumonia
     Dosage: UNK, QID
     Dates: start: 20231204, end: 20231226
  6. PULMICORT TURBUHALER [Concomitant]
     Active Substance: BUDESONIDE
     Indication: Pneumonia
     Dosage: UNK, TID
     Dates: start: 20231204, end: 20231226
  7. NITRODERM [Concomitant]
     Active Substance: NITROGLYCERIN
     Indication: Hypertension
     Dosage: 10 MG ((PATCH FOR 14 HOURS AND 10 HOURS OFF))
     Route: 003
     Dates: start: 20231204, end: 20231212
  8. LASIX [Concomitant]
     Active Substance: FUROSEMIDE
     Indication: Hypertension
     Dosage: 40 MG, TID
     Dates: start: 20231212, end: 20231219
  9. ATORVASTATIN CALCIUM [Concomitant]
     Active Substance: ATORVASTATIN CALCIUM
     Indication: Myocardial ischaemia
     Dosage: 40 MG, QD
     Route: 048
     Dates: start: 20231204, end: 20231226
  10. CONTROLOC [Concomitant]
     Active Substance: PANTOPRAZOLE SODIUM
     Indication: Prophylaxis against gastrointestinal ulcer
     Dosage: UNK
     Dates: start: 20231204, end: 20231226

REACTIONS (6)
  - Idiopathic pulmonary fibrosis [Unknown]
  - Acute myocardial infarction [Unknown]
  - Pneumonia [Unknown]
  - Hypertension [Unknown]
  - Melaena [Recovered/Resolved]
  - Gastric ulcer [Unknown]
